FAERS Safety Report 8784418 (Version 2)
Quarter: 2012Q4

REPORT INFORMATION
  Report Type: 
  Country: US (occurrence: US)
  Receive Date: 20120913
  Receipt Date: 20120921
  Transmission Date: 20130627
  Serious: Yes (Other)
  Sender: FDA-Public Use
  Company Number: US-PFIZER INC-2012220317

PATIENT
  Age: 54 Year
  Sex: Male
  Weight: 77.55 kg

DRUGS (8)
  1. LIPITOR [Suspect]
     Indication: BLOOD CHOLESTEROL INCREASED
     Dosage: 10 mg, daily
     Route: 048
     Dates: start: 201112, end: 201208
  2. VALACICLOVIR [Interacting]
     Indication: HERPES SIMPLEX
     Dosage: 500 mg, daily
  3. LEVOCARNITINE [Interacting]
     Indication: BLOOD CHOLESTEROL INCREASED
     Dosage: 300 mg, UNK
  4. PREZISTA [Interacting]
     Indication: HIV INFECTION
     Dosage: 600 mg, 2x/day
  5. INTELENCE [Interacting]
     Indication: HIV INFECTION
     Dosage: 200 mg, 2x/day
  6. ISENTRESS [Interacting]
     Indication: HIV INFECTION
     Dosage: 400 mg, 2x/day
  7. ABACAVIR SULFATE [Interacting]
     Indication: HIV INFECTION
     Dosage: 300 mg, 2x/day
  8. NORVIR [Interacting]
     Indication: HIV INFECTION
     Dosage: 100 mg, 2x/day

REACTIONS (6)
  - Drug interaction [Unknown]
  - Mitochondrial toxicity [Unknown]
  - Neuropathy peripheral [Recovering/Resolving]
  - Hypoaesthesia [Not Recovered/Not Resolved]
  - Blood cholesterol increased [Unknown]
  - Red blood cell count abnormal [Recovering/Resolving]
